FAERS Safety Report 10771400 (Version 2)
Quarter: 2015Q1

REPORT INFORMATION
  Report Type: Spontaneous
  Country: FI (occurrence: FI)
  Receive Date: 20150206
  Receipt Date: 20150316
  Transmission Date: 20150721
  Serious: Yes (Hospitalization)
  Sender: FDA-Public Use
  Company Number: FI-TEVA-537625ISR

PATIENT
  Age: 67 Year
  Sex: Female

DRUGS (5)
  1. THYROXIN 100 MICROG [Concomitant]
     Dosage: 1.25 DOSAGE FORMS DAILY;
     Route: 048
  2. SIMVASTATIN ACTAVIS 20 MG [Concomitant]
     Dosage: 20 MILLIGRAM DAILY;
     Route: 048
  3. ZANIDIP 10 MG [Concomitant]
     Dosage: 10 MILLIGRAM DAILY;
     Route: 048
  4. ORLOC 5 MG [Concomitant]
     Active Substance: BISOPROLOL FUMARATE
     Route: 048
  5. ACLOVIR 800 MG RATIOPHARM [Suspect]
     Active Substance: ACYCLOVIR
     Indication: HERPES ZOSTER
     Dosage: 4000 MILLIGRAM DAILY;
     Route: 048
     Dates: start: 20150121, end: 20150127

REACTIONS (2)
  - Delirium [Recovered/Resolved]
  - Hyponatraemia [Recovered/Resolved]

NARRATIVE: CASE EVENT DATE: 20150123
